FAERS Safety Report 23799463 (Version 2)
Quarter: 2024Q2

REPORT INFORMATION
  Report Type: Report from Study
  Country: BR (occurrence: BR)
  Receive Date: 20240430
  Receipt Date: 20240502
  Transmission Date: 20240715
  Serious: Yes (Other)
  Sender: FDA-Public Use
  Company Number: BR-JNJFOC-20221249949

PATIENT
  Age: 4 Decade
  Sex: Male
  Weight: 67 kg

DRUGS (3)
  1. INFLIXIMAB [Suspect]
     Active Substance: INFLIXIMAB
     Indication: Crohn^s disease
     Dosage: 15/APR/2024 LAST APPLICATION
     Route: 041
     Dates: start: 20210726
  2. INFLIXIMAB [Suspect]
     Active Substance: INFLIXIMAB
     Route: 041
  3. REMICADE [Suspect]
     Active Substance: INFLIXIMAB
     Indication: Crohn^s disease
     Dosage: 7 VIALS
     Route: 041
     Dates: start: 20210726

REACTIONS (6)
  - Infusion related reaction [Unknown]
  - Psoriasis [Unknown]
  - Herpes virus infection [Unknown]
  - Stress [Unknown]
  - Product preparation issue [Unknown]
  - Off label use [Unknown]
